FAERS Safety Report 16211574 (Version 1)
Quarter: 2019Q2

REPORT INFORMATION
  Report Type: Spontaneous
  Country: US (occurrence: US)
  Receive Date: 20190418
  Receipt Date: 20190418
  Transmission Date: 20190711
  Serious: No
  Sender: FDA-Public Use
  Company Number: US-AMGEN-USASP2019058909

PATIENT
  Age: 88 Year
  Sex: Female

DRUGS (1)
  1. XGEVA [Suspect]
     Active Substance: DENOSUMAB
     Indication: PROPHYLAXIS
     Dosage: UNK
     Route: 065
     Dates: start: 201902

REACTIONS (6)
  - Pain in jaw [Not Recovered/Not Resolved]
  - Toothache [Not Recovered/Not Resolved]
  - Swelling face [Not Recovered/Not Resolved]
  - Headache [Not Recovered/Not Resolved]
  - Facial pain [Not Recovered/Not Resolved]
  - Osteoporosis [Not Recovered/Not Resolved]

NARRATIVE: CASE EVENT DATE: 20190307
